FAERS Safety Report 14185561 (Version 1)
Quarter: 2017Q4

REPORT INFORMATION
  Report Type: Spontaneous
  Country: US (occurrence: US)
  Receive Date: 20171112
  Receipt Date: 20171112
  Transmission Date: 20180321
  Serious: No
  Sender: FDA-Public Use
  Company Number: None

PATIENT
  Age: 65 Year
  Sex: Male
  Weight: 87.75 kg

DRUGS (1)
  1. EXTRA STRENGTH PAIN RELIEVER [Suspect]
     Active Substance: ACETAMINOPHEN
     Indication: PAIN
     Dosage: ?          QUANTITY:100 TABLET(S);?
     Route: 048

REACTIONS (2)
  - Manufacturing production issue [None]
  - Product colour issue [None]

NARRATIVE: CASE EVENT DATE: 20171112
